FAERS Safety Report 7746891-8 (Version None)
Quarter: 2011Q3

REPORT INFORMATION
  Report Type: 
  Country: None (occurrence: None)
  Receive Date: 20110913
  Receipt Date: 20110901
  Transmission Date: 20111222
  Serious: Yes (Other)
  Sender: FDA-Public Use
  Company Number: US-CELGENEUS-163-21880-11082645

PATIENT
  Sex: Female

DRUGS (13)
  1. LASIX [Concomitant]
     Route: 065
  2. TRICOR [Concomitant]
     Route: 065
  3. METOPROLOL TARTRATE [Concomitant]
     Route: 065
  4. CLONIDINE [Concomitant]
     Route: 065
  5. SPIRONOLACTONE [Concomitant]
     Route: 065
  6. REVLIMID [Suspect]
     Indication: MYELODYSPLASTIC SYNDROME
     Dosage: 10 MILLIGRAM
     Route: 048
     Dates: start: 20110819
  7. FLONASE [Concomitant]
     Route: 065
  8. TYLENOL-500 [Concomitant]
     Route: 065
  9. LOTRISONE [Concomitant]
     Route: 065
  10. NORVASC [Concomitant]
     Route: 065
  11. NITROGLYCERIN [Concomitant]
     Route: 065
  12. JANUVIA [Concomitant]
     Route: 065
  13. LOCOID [Concomitant]
     Route: 065

REACTIONS (5)
  - NASAL CONGESTION [None]
  - FOOT FRACTURE [None]
  - DIARRHOEA [None]
  - DYSPNOEA [None]
  - FULL BLOOD COUNT DECREASED [None]
